FAERS Safety Report 6672660-6 (Version None)
Quarter: 2010Q2

REPORT INFORMATION
  Report Type: 
  Country: None (occurrence: None)
  Receive Date: 20100408
  Receipt Date: 20100331
  Transmission Date: 20101027
  Serious: Yes (Hospitalization)
  Sender: FDA-Public Use
  Company Number: IN-ASTRAZENECA-2010SE14368

PATIENT
  Age: 45 Year
  Sex: Female

DRUGS (7)
  1. MEROPENEM [Suspect]
     Route: 042
  2. CRYSTALLOIDS [Concomitant]
     Indication: RESUSCITATION
  3. CEFOPERAZONE SULBACTAM [Concomitant]
     Indication: ANTIBIOTIC THERAPY
     Route: 042
  4. METRONIDAZOLE [Concomitant]
     Indication: ANTIBIOTIC THERAPY
     Route: 042
  5. NEUROMUSCULAR BLOCKERS [Concomitant]
  6. CORTICOSTEROIDS [Concomitant]
     Dosage: AT A LOW DOSE
  7. INOTROPES [Concomitant]
     Indication: RESUSCITATION
     Route: 042

REACTIONS (6)
  - HYPOKALAEMIA [None]
  - ILEUS PARALYTIC [None]
  - METABOLIC ALKALOSIS [None]
  - MUSCULAR WEAKNESS [None]
  - VENTRICULAR EXTRASYSTOLES [None]
  - WEANING FAILURE [None]
